FAERS Safety Report 26083519 (Version 1)
Quarter: 2025Q4

REPORT INFORMATION
  Report Type: Spontaneous
  Country: JP (occurrence: JP)
  Receive Date: 20251124
  Receipt Date: 20251124
  Transmission Date: 20260118
  Serious: Yes (Hospitalization, Other)
  Sender: MERCK SHARP & DOHME LLC
  Company Number: JP-009507513-2349653

PATIENT
  Age: 81 Year
  Sex: Male
  Weight: 46.5 kg

DRUGS (11)
  1. STROMECTOL [Suspect]
     Active Substance: IVERMECTIN
     Indication: Scabies
     Route: 048
     Dates: start: 20251017, end: 20251017
  2. STROMECTOL [Suspect]
     Active Substance: IVERMECTIN
     Indication: Scabies
     Route: 048
     Dates: start: 20251024, end: 20251024
  3. Memantine OD tablets 10 mg [Concomitant]
     Route: 048
  4. Valproate sodium extended-release tablets A 200 mg (Toa) [Concomitant]
     Route: 048
  5. Trazodone hydrochloride tablets 25 mg (Amel) [Concomitant]
     Route: 048
  6. Risperidone oral solution 1 mg/mL (Toa) [Concomitant]
     Route: 048
  7. REXULTI [Concomitant]
     Active Substance: BREXPIPRAZOLE
     Route: 048
  8. Bromhexine hydrochloride tablets 4 mg (Toa) [Concomitant]
     Route: 048
  9. Magnesium oxide tablets 330 mg (Ken-ei) [Concomitant]
     Route: 048
  10. Potassium L-aspartate tablets 300 mg [Concomitant]
     Route: 048
  11. BELSOMRA Tablet 15mg [Concomitant]
     Route: 048

REACTIONS (3)
  - Platelet count decreased [Not Recovered/Not Resolved]
  - Hyponatraemia [Recovering/Resolving]
  - White blood cell count decreased [Recovering/Resolving]

NARRATIVE: CASE EVENT DATE: 20251026
